FAERS Safety Report 5371934-9 (Version None)
Quarter: 2007Q2

REPORT INFORMATION
  Report Type: 
  Country: None (occurrence: None)
  Receive Date: 20070625
  Receipt Date: 20070615
  Transmission Date: 20071010
  Serious: Yes (Death, Life-Threatening, Hospitalization)
  Sender: FDA-Public Use
  Company Number: 2005EU001900

PATIENT
  Age: 58 Year
  Sex: Male

DRUGS (11)
  1. TACROLIMUS [Suspect]
     Indication: LIVER TRANSPLANT
     Dosage: 3 MG, BID, ORAL
     Route: 048
     Dates: start: 20050626, end: 20050825
  2. MYCOPHENOLATE MOFETIL [Suspect]
     Indication: LIVER TRANSPLANT
     Dosage: 1000 MG, BID, IV NOS
     Route: 042
     Dates: start: 20050626, end: 20050713
  3. METHYLPREDNISOLONE [Suspect]
     Indication: LIVER TRANSPLANT
     Dosage: 500.00, UID/QD
     Dates: start: 20050626, end: 20050712
  4. PREDNISONE TAB [Suspect]
     Indication: LIVER TRANSPLANT
     Dosage: 20 MG, UID/QD
     Dates: start: 20050626, end: 20050729
  5. ANTITHROMBIN II (ANTITHROMBIN II) [Concomitant]
  6. TRIMETHOPRIM [Concomitant]
  7. CALCIUM (CALCIUM) [Concomitant]
  8. CILASTIN W/IMIPENEM (IMIPENEM, CILASTATIN) [Concomitant]
  9. METAMIZOLE (METAMIZOLE SODIUM) [Concomitant]
  10. LOPERAMIDE HCL [Concomitant]
  11. BLOOD COAGULATION FACTORS [Concomitant]

REACTIONS (17)
  - ABDOMINAL INFECTION [None]
  - ASPIRATION TRACHEAL ABNORMAL [None]
  - ASTHENIA [None]
  - BONE MARROW FAILURE [None]
  - CANDIDIASIS [None]
  - CEREBRAL HAEMORRHAGE [None]
  - CONTINUOUS HAEMODIAFILTRATION [None]
  - CONVULSION [None]
  - ENTEROCOCCAL INFECTION [None]
  - HAEMORRHAGE INTRACRANIAL [None]
  - HEPATIC FAILURE [None]
  - LUNG INFECTION [None]
  - MULTI-ORGAN FAILURE [None]
  - PSEUDOMONAS INFECTION [None]
  - RENAL FAILURE [None]
  - REPERFUSION INJURY [None]
  - SEPSIS [None]
